FAERS Safety Report 9000602 (Version 3)
Quarter: 2013Q2

REPORT INFORMATION
  Report Type: Spontaneous
  Country: US (occurrence: US)
  Receive Date: 20130107
  Receipt Date: 20130521
  Transmission Date: 20140414
  Serious: No
  Sender: FDA-Public Use
  Company Number: US-PFIZER INC-2013001239

PATIENT
  Age: 75 Year
  Sex: Female

DRUGS (2)
  1. INLYTA [Suspect]
     Indication: RENAL CANCER
     Dosage: 1 MG [TAKE 3 TABLETS IN THE MORNING, AND TAKE 3 TABLETS IN THE EVENING]
     Dates: start: 20120512
  2. INLYTA [Suspect]
     Dosage: 3 MG, 2X/DAY
     Dates: start: 20121205

REACTIONS (3)
  - Blood pressure increased [Unknown]
  - Dysphonia [Unknown]
  - Limb discomfort [Unknown]
